FAERS Safety Report 15929437 (Version 1)
Quarter: 2019Q1

REPORT INFORMATION
  Report Type: Spontaneous
  Country: US (occurrence: US)
  Receive Date: 20190206
  Receipt Date: 20190206
  Transmission Date: 20190417
  Serious: Yes (Other)
  Sender: FDA-Public Use
  Company Number: US-PFIZER INC-2019052299

PATIENT
  Age: 12 Year
  Sex: Male

DRUGS (1)
  1. GENOTROPIN [Suspect]
     Active Substance: SOMATROPIN
     Indication: SILVER-RUSSELL SYNDROME
     Dosage: 1 MG, DAILY
     Dates: start: 20151107

REACTIONS (11)
  - Blood alkaline phosphatase increased [Unknown]
  - Product use in unapproved indication [Unknown]
  - High density lipoprotein decreased [Unknown]
  - Blood chloride decreased [Unknown]
  - Insulin-like growth factor increased [Unknown]
  - Blood calcium increased [Unknown]
  - Protein total increased [Unknown]
  - Carbon dioxide decreased [Unknown]
  - Blood creatinine decreased [Unknown]
  - Anion gap increased [Unknown]
  - Blood sodium decreased [Unknown]
